FAERS Safety Report 15785574 (Version 1)
Quarter: 2019Q1

REPORT INFORMATION
  Report Type: Spontaneous
  Country: US (occurrence: US)
  Receive Date: 20190101
  Receipt Date: 20190101
  Transmission Date: 20190417
  Serious: Yes (Life-Threatening, Hospitalization)
  Sender: FDA-Public Use
  Company Number: None

PATIENT
  Age: 19 Year
  Sex: Male
  Weight: 67.5 kg

DRUGS (3)
  1. COUNSELING [Concomitant]
     Dates: start: 20180911
  2. SUICIDE PREVENTION IN-STAY FACILITY [Concomitant]
  3. SINGULAIR [Suspect]
     Active Substance: MONTELUKAST SODIUM
     Indication: ASTHMA

REACTIONS (2)
  - Suicide attempt [None]
  - Hallucination [None]
